FAERS Safety Report 9117112 (Version 1)
Quarter: 2013Q1

REPORT INFORMATION
  Report Type: Spontaneous
  Country: FR (occurrence: FR)
  Receive Date: 20130225
  Receipt Date: 20130225
  Transmission Date: 20140127
  Serious: Yes (Death)
  Sender: FDA-Public Use
  Company Number: FR-JNJFOC-20130206038

PATIENT
  Age: 39 Year
  Sex: Male

DRUGS (1)
  1. HALDOL [Suspect]
     Indication: PSYCHOTIC DISORDER
     Route: 048
     Dates: start: 20121215, end: 20130109

REACTIONS (1)
  - Completed suicide [Fatal]
